FAERS Safety Report 10455359 (Version 1)
Quarter: 2014Q3

REPORT INFORMATION
  Report Type: Spontaneous
  Country: US (occurrence: US)
  Receive Date: 20140916
  Receipt Date: 20140916
  Transmission Date: 20150326
  Serious: Yes (Other)
  Sender: FDA-Public Use
  Company Number: US-TEVA-493022USA

PATIENT

DRUGS (1)
  1. TEMOZOLOMIDE [Suspect]
     Active Substance: TEMOZOLOMIDE

REACTIONS (5)
  - Rash [Unknown]
  - Melanocytic naevus [Unknown]
  - Product substitution issue [Unknown]
  - Haemorrhage [Unknown]
  - Wound secretion [Unknown]
